FAERS Safety Report 14739638 (Version 1)
Quarter: 2018Q2

REPORT INFORMATION
  Report Type: Spontaneous
  Country: US (occurrence: US)
  Receive Date: 20180404
  Receipt Date: 20180404
  Transmission Date: 20180711
  Serious: Yes (Life-Threatening, Hospitalization)
  Sender: FDA-Public Use
  Company Number: None

PATIENT
  Age: 74 Year
  Sex: Male

DRUGS (1)
  1. DAPTOMYCIN. [Suspect]
     Active Substance: DAPTOMYCIN
     Indication: OSTEOMYELITIS
     Route: 042
     Dates: start: 20180213, end: 20180316

REACTIONS (5)
  - Hypoxia [None]
  - Cough [None]
  - Respiratory distress [None]
  - Eosinophilic pneumonia [None]
  - Wheezing [None]

NARRATIVE: CASE EVENT DATE: 20180316
